FAERS Safety Report 9737204 (Version 2)
Quarter: 2013Q4

REPORT INFORMATION
  Report Type: Report from Study
  Country: US (occurrence: US)
  Receive Date: 20131206
  Receipt Date: 20131210
  Transmission Date: 20140711
  Serious: Yes (Hospitalization, Other)
  Sender: FDA-Public Use
  Company Number: US-ROCHE-1312882

PATIENT
  Age: 69 Year
  Sex: Male

DRUGS (7)
  1. XELODA [Suspect]
     Indication: COLON CANCER
     Route: 048
     Dates: start: 20130605, end: 20131001
  2. VEMURAFENIB [Suspect]
     Indication: PRODUCT USED FOR UNKNOWN INDICATION
     Route: 065
  3. CYCLOBENZAPRINE [Concomitant]
     Route: 048
  4. MORPHINE [Concomitant]
     Route: 042
  5. ZOFRAN [Concomitant]
     Route: 042
  6. PEPCID [Concomitant]
     Route: 065
  7. TYLENOL [Concomitant]
     Route: 048

REACTIONS (4)
  - Pulmonary thrombosis [Not Recovered/Not Resolved]
  - Nervous system disorder [Not Recovered/Not Resolved]
  - Pneumonia [Unknown]
  - Pulmonary embolism [Unknown]
